FAERS Safety Report 12718001 (Version 1)
Quarter: 2016Q3

REPORT INFORMATION
  Report Type: Spontaneous
  Country: US (occurrence: US)
  Receive Date: 20160906
  Receipt Date: 20160906
  Transmission Date: 20161109
  Serious: Yes (Other)
  Sender: FDA-Public Use
  Company Number: US-SAOL THERAPEUTICS-2016SAO00452

PATIENT
  Age: 52 Year
  Sex: Female

DRUGS (2)
  1. LIORESAL [Suspect]
     Active Substance: BACLOFEN
     Indication: MUSCLE SPASTICITY
     Dosage: 241.6 ?G, \DAY
     Route: 037
  2. LIORESAL [Suspect]
     Active Substance: BACLOFEN
     Indication: SPINAL CORD INJURY

REACTIONS (6)
  - Metastatic neoplasm [Unknown]
  - Pruritus [Unknown]
  - Nuclear magnetic resonance imaging abnormal [Unknown]
  - Complication associated with device [Unknown]
  - Muscle spasticity [Unknown]
  - Device dislocation [Unknown]

NARRATIVE: CASE EVENT DATE: 201410
